FAERS Safety Report 11213051 (Version 1)
Quarter: 2015Q2

REPORT INFORMATION
  Report Type: Spontaneous
  Country: US (occurrence: None)
  Receive Date: 20150622
  Receipt Date: 20150622
  Transmission Date: 20150821
  Serious: No
  Sender: FDA-Public Use
  Company Number: None

PATIENT
  Age: 86 Year
  Sex: Female

DRUGS (1)
  1. MUCUS AND CHEST CONGESTION [Suspect]
     Active Substance: GUAIFENESIN
     Indication: PRODUCTIVE COUGH

REACTIONS (2)
  - Physical product label issue [None]
  - Product packaging quantity issue [None]

NARRATIVE: CASE EVENT DATE: 20150620
